FAERS Safety Report 6234969-X (Version None)
Quarter: 2009Q2

REPORT INFORMATION
  Report Type: 
  Country: None (occurrence: None)
  Receive Date: 20090616
  Receipt Date: 20090608
  Transmission Date: 20091009
  Serious: Yes (Life-Threatening, Hospitalization)
  Sender: FDA-Public Use
  Company Number: ADR3462009 (DE-BFARM-09024431)

PATIENT
  Age: 54 Year
  Sex: Male

DRUGS (12)
  1. RAMIPRIL [Suspect]
     Indication: HYPERTONIA
     Dosage: 5 MG, ORAL
     Route: 048
  2. FALITROM [Concomitant]
  3. FURORESE [Concomitant]
  4. HYDROCHLOROTHIAZIDE [Concomitant]
  5. PANTOZOL [Concomitant]
  6. PREGABALIN [Concomitant]
  7. NEURONTIN [Concomitant]
  8. SIMVASTATIN [Concomitant]
  9. SIFROL [Concomitant]
  10. BEROTEC [Concomitant]
  11. SPIRIVA [Concomitant]
     Dosage: 1 DF
  12. BISOPROLOL [Concomitant]

REACTIONS (2)
  - DEHYDRATION [None]
  - INTERNATIONAL NORMALISED RATIO INCREASED [None]
